FAERS Safety Report 6044927-6 (Version None)
Quarter: 2009Q1

REPORT INFORMATION
  Report Type: 
  Country: None (occurrence: None)
  Receive Date: 20090116
  Receipt Date: 20090116
  Transmission Date: 20090719
  Serious: No
  Sender: FDA-Public Use
  Company Number: None

PATIENT
  Age: 69 Year
  Sex: Female
  Weight: 52.1637 kg

DRUGS (2)
  1. VAGIFEM [Suspect]
     Indication: VULVOVAGINAL DISCOMFORT
     Dosage: OCT 2008 2 WEEKS DEC 2008 1 1/2 WEEKS
     Dates: start: 20081001
  2. VAGIFEM [Suspect]
     Indication: VULVOVAGINAL DISCOMFORT
     Dosage: OCT 2008 2 WEEKS DEC 2008 1 1/2 WEEKS
     Dates: start: 20081201

REACTIONS (2)
  - NIPPLE EXUDATE BLOODY [None]
  - NIPPLE PAIN [None]
